FAERS Safety Report 26133515 (Version 1)
Quarter: 2025Q4

REPORT INFORMATION
  Report Type: Spontaneous
  Country: GB (occurrence: GB)
  Receive Date: 20251209
  Receipt Date: 20251209
  Transmission Date: 20260117
  Serious: Yes (Other)
  Sender: CELLTRION
  Company Number: None

PATIENT

DRUGS (2)
  1. ADALIMUMAB [Suspect]
     Active Substance: ADALIMUMAB
     Indication: Crohn^s disease
     Dosage: 40 MG EVERY OTHER WEEK
     Dates: start: 20240919, end: 20250904
  2. ADALIMUMAB [Suspect]
     Active Substance: ADALIMUMAB

REACTIONS (3)
  - Dysgeusia [Not Recovered/Not Resolved]
  - Lip swelling [Recovering/Resolving]
  - Lip dry [Unknown]

NARRATIVE: CASE EVENT DATE: 20250814
